FAERS Safety Report 24465210 (Version 1)
Quarter: 2024Q4

REPORT INFORMATION
  Report Type: Report from Study
  Country: US (occurrence: US)
  Receive Date: 20241018
  Receipt Date: 20241018
  Transmission Date: 20250115
  Serious: No
  Sender: ROCHE
  Company Number: US-ROCHE-3530251

PATIENT
  Age: 28 Year
  Sex: Female

DRUGS (9)
  1. XOLAIR [Suspect]
     Active Substance: OMALIZUMAB
     Indication: Idiopathic urticaria
     Dosage: ANTICIPATED DATE OF TREATMENT; 15/APR/2024
     Route: 058
     Dates: start: 20240318
  2. XOLAIR [Suspect]
     Active Substance: OMALIZUMAB
     Route: 058
  3. ALLEGRA [Concomitant]
     Active Substance: FEXOFENADINE HYDROCHLORIDE
  4. BUPROPION [Concomitant]
     Active Substance: BUPROPION
  5. EPINEPHRINE [Concomitant]
     Active Substance: EPINEPHRINE
  6. FAMOTIDINE [Concomitant]
     Active Substance: FAMOTIDINE
  7. FLUOXETINE [Concomitant]
     Active Substance: FLUOXETINE HYDROCHLORIDE
  8. HYDROXYZINE [Concomitant]
     Active Substance: HYDROXYZINE HYDROCHLORIDE
  9. PREDNISONE [Concomitant]
     Active Substance: PREDNISONE

REACTIONS (11)
  - Nausea [Unknown]
  - Abdominal discomfort [Unknown]
  - Confusional state [Unknown]
  - Erythema [Unknown]
  - Skin burning sensation [Unknown]
  - Diarrhoea [Unknown]
  - Urticaria [Unknown]
  - Brain fog [Unknown]
  - Rash erythematous [Unknown]
  - Rash pruritic [Unknown]
  - Pruritus [Unknown]
